FAERS Safety Report 9077630 (Version 1)
Quarter: 2013Q1

REPORT INFORMATION
  Report Type: Report from Study
  Country: US (occurrence: US)
  Receive Date: 20130130
  Receipt Date: 20130130
  Transmission Date: 20140127
  Serious: No
  Sender: FDA-Public Use
  Company Number: US-ABBOTT-12P-163-0961559-00

PATIENT
  Age: 51 Year
  Sex: Female
  Weight: 80.81 kg

DRUGS (6)
  1. HUMIRA 40 MG/0.8 ML PEN [Suspect]
     Indication: PSORIASIS
     Route: 058
     Dates: start: 20120711
  2. HUMIRA 40 MG/0.8 ML PEN [Suspect]
     Indication: PSORIATIC ARTHROPATHY
  3. NEXIUM [Concomitant]
     Indication: GASTROOESOPHAGEAL REFLUX DISEASE
  4. GAS-X [Concomitant]
     Indication: ABDOMINAL DISTENSION
  5. ALEVE [Concomitant]
     Indication: ARTHRALGIA
  6. ALBUTEROL [Concomitant]
     Indication: ASTHMA

REACTIONS (2)
  - Headache [Recovered/Resolved]
  - Headache [Recovered/Resolved]
